FAERS Safety Report 5551671-8 (Version None)
Quarter: 2007Q4

REPORT INFORMATION
  Report Type: 
  Country: None (occurrence: None)
  Receive Date: 20071212
  Receipt Date: 20071207
  Transmission Date: 20080405
  Serious: Yes (Other)
  Sender: FDA-Public Use
  Company Number: JP-GENENTECH-251910

PATIENT
  Sex: Male
  Weight: 81 kg

DRUGS (5)
  1. RITUXAN [Suspect]
     Indication: NON-HODGKIN'S LYMPHOMA
     Dosage: 680 MG, QD
     Route: 042
     Dates: start: 20070309
  2. ACETAMINOPHEN [Concomitant]
     Indication: PREMEDICATION
     Dosage: 400 MG, UNK
     Route: 048
     Dates: start: 20060309
  3. CLEMASTINE FUMARATE [Concomitant]
     Indication: PREMEDICATION
     Dosage: 1 MG, UNK
     Route: 048
     Dates: start: 20070309
  4. FAMOTIDINE [Concomitant]
     Indication: PROPHYLAXIS
     Dosage: 20 MG, QD
     Route: 048
     Dates: start: 20060309
  5. ZYLORIC [Concomitant]
     Indication: PROPHYLAXIS
     Dosage: 300 MG, QD
     Route: 048
     Dates: start: 20060309

REACTIONS (1)
  - INFUSION RELATED REACTION [None]
